FAERS Safety Report 6523128-9 (Version None)
Quarter: 2009Q4

REPORT INFORMATION
  Report Type: 
  Country: None (occurrence: None)
  Receive Date: 20091222
  Receipt Date: 20091208
  Transmission Date: 20100525
  Serious: Yes (Hospitalization)
  Sender: FDA-Public Use
  Company Number: DSM-2009-01919

PATIENT
  Age: 88 Year
  Sex: Female

DRUGS (5)
  1. OLMESARTAN MEDOXOMIL [Suspect]
     Indication: HYPERTENSION
     Dosage: (1 IN 1 D)
  2. NEXIUM [Concomitant]
  3. PERFALGAN (PARACETAMOL) (PARACETAMOL) [Concomitant]
  4. SPASFON (PHLOROGLUCINOL TRIMETHYLPHLOROGLUCINOL) (PHLOROGLUCINOL TRIME [Concomitant]
  5. LOVENOX (HEPARIN-FRACTION, SODIUM SALT) (HEPARIN-FRACTION, SODIUM SALT [Concomitant]

REACTIONS (3)
  - DUODENAL NEOPLASM [None]
  - ILEUS [None]
  - PANCREATITIS ACUTE [None]
